FAERS Safety Report 24330349 (Version 1)
Quarter: 2024Q3

REPORT INFORMATION
  Report Type: Spontaneous
  Country: EG (occurrence: EG)
  Receive Date: 20240918
  Receipt Date: 20240918
  Transmission Date: 20241016
  Serious: Yes (Hospitalization)
  Sender: NOVO NORDISK
  Company Number: EG-NOVOPROD-1280721

PATIENT

DRUGS (2)
  1. INSULIN HUMAN [Suspect]
     Active Substance: INSULIN HUMAN
     Indication: Product used for unknown indication
     Dosage: 55 IU, QD (30U AT MORNING AND 25U AT NIGHT)
     Route: 064
  2. MIXTARD HUMAN 70/30 [Suspect]
     Active Substance: INSULIN HUMAN
     Indication: Product used for unknown indication
     Dosage: UNK
     Route: 064

REACTIONS (2)
  - Intensive care [Unknown]
  - Foetal exposure during pregnancy [Recovered/Resolved]
